FAERS Safety Report 4343589-3 (Version None)
Quarter: 2004Q2

REPORT INFORMATION
  Report Type: 
  Country: None (occurrence: None)
  Receive Date: 20040419
  Receipt Date: 20040401
  Transmission Date: 20050107
  Serious: Yes (Hospitalization, Other)
  Sender: FDA-Public Use
  Company Number: 03-296-0768-1

PATIENT
  Age: 72 Year
  Sex: Male
  Weight: 122 kg

DRUGS (1)
  1. DAUNORUBICIN, BEN VENUE LABS [Suspect]
     Indication: ACUTE MYELOID LEUKAEMIA
     Dosage: 45 MG/M2 IV DAYS 1, 3
     Route: 042
     Dates: start: 20030514

REACTIONS (9)
  - ABDOMINAL PAIN [None]
  - CANDIDIASIS [None]
  - ENCEPHALOPATHY [None]
  - ENTEROCOCCAL SEPSIS [None]
  - FAILURE TO THRIVE [None]
  - GLYCOPEPTIDE ANTIBIOTIC RESISTANT ENTEROCOCCAL INFECTION [None]
  - HYPERTENSION [None]
  - MENTAL STATUS CHANGES [None]
  - URINARY TRACT INFECTION [None]
